FAERS Safety Report 4353754-7 (Version None)
Quarter: 2004Q2

REPORT INFORMATION
  Report Type: 
  Country: None (occurrence: None)
  Receive Date: 20040505
  Receipt Date: 20040323
  Transmission Date: 20050107
  Serious: Yes (Other)
  Sender: FDA-Public Use
  Company Number: ES-MERCK-0403ESP00038

PATIENT
  Age: 61 Year
  Sex: Female
  Weight: 60 kg

DRUGS (12)
  1. AMIKACIN [Concomitant]
     Indication: SHOCK
     Route: 042
     Dates: start: 20040219, end: 20040223
  2. AMIKACIN [Concomitant]
     Indication: RESPIRATORY DISTRESS
     Route: 042
     Dates: start: 20040219, end: 20040223
  3. PRIMAXIN [Suspect]
     Indication: SHOCK
     Route: 042
     Dates: start: 20040222, end: 20040223
  4. PRIMAXIN [Suspect]
     Route: 042
     Dates: start: 20040219, end: 20040221
  5. PRIMAXIN [Suspect]
     Route: 042
     Dates: start: 20040224, end: 20040226
  6. PRIMAXIN [Suspect]
     Route: 042
     Dates: start: 20040313, end: 20040315
  7. PRIMAXIN [Suspect]
     Indication: RESPIRATORY DISTRESS
     Route: 042
     Dates: start: 20040222, end: 20040223
  8. PRIMAXIN [Suspect]
     Route: 042
     Dates: start: 20040219, end: 20040221
  9. PRIMAXIN [Suspect]
     Route: 042
     Dates: start: 20040224, end: 20040226
  10. PRIMAXIN [Suspect]
     Route: 042
     Dates: start: 20040313, end: 20040315
  11. LINEZOLID [Concomitant]
     Indication: SHOCK
     Route: 042
     Dates: start: 20040225, end: 20040316
  12. LINEZOLID [Concomitant]
     Indication: RESPIRATORY DISTRESS
     Route: 042
     Dates: start: 20040225, end: 20040316

REACTIONS (3)
  - CANDIDIASIS [None]
  - CHOLESTASIS [None]
  - NEPHROPATHY TOXIC [None]
